FAERS Safety Report 10619723 (Version 1)
Quarter: 2014Q4

REPORT INFORMATION
  Report Type: Spontaneous
  Country: NL (occurrence: None)
  Receive Date: 20141126
  Receipt Date: 20141126
  Transmission Date: 20150529
  Serious: Yes (Other)
  Sender: FDA-Public Use
  Company Number: IPC201411-000629

PATIENT
  Sex: Male

DRUGS (8)
  1. ROSUVASTATIN (ROSUVASTATIN) (ROSUVASTATIN) [Suspect]
     Active Substance: ROSUVASTATIN
     Indication: HYPERCHOLESTEROLAEMIA
  2. LERCANIDIPINE [Concomitant]
     Active Substance: LERCANIDIPINE
  3. OMEPRAZOLE. [Concomitant]
     Active Substance: OMEPRAZOLE
  4. HYDROCHLOROTHIAZIDE/VALSARTAN [Concomitant]
     Active Substance: HYDROCHLOROTHIAZIDE\VALSARTAN
  5. METOPROLOL TARTRATE (METOPROLOL TARTRATE) (METOPROLOL TARTRATE) [Suspect]
     Active Substance: METOPROLOL TARTRATE
  6. RAMIPRIL. [Concomitant]
     Active Substance: RAMIPRIL
  7. OFLOXACINE [Suspect]
     Active Substance: OFLOXACIN
     Indication: PROSTATITIS
  8. POVIDONE [Concomitant]
     Active Substance: POVIDONE

REACTIONS (2)
  - Muscle rupture [None]
  - Drug interaction [None]
